FAERS Safety Report 13610413 (Version 3)
Quarter: 2017Q2

REPORT INFORMATION
  Report Type: Spontaneous
  Country: GB (occurrence: GB)
  Receive Date: 20170605
  Receipt Date: 20170620
  Transmission Date: 20170830
  Serious: Yes (Disabling)
  Sender: FDA-Public Use
  Company Number: GB-UNICHEM LABORATORIES LIMITED-UCM201705-000158

PATIENT
  Age: 87 Year
  Sex: Male

DRUGS (9)
  1. MEMANTINE. [Concomitant]
     Active Substance: MEMANTINE
  2. OMEPRAZOLE. [Suspect]
     Active Substance: OMEPRAZOLE
  3. DONEPEZIL. [Suspect]
     Active Substance: DONEPEZIL
  4. OMEPRAZOLE. [Suspect]
     Active Substance: OMEPRAZOLE
  5. LOSARTAN. [Concomitant]
     Active Substance: LOSARTAN
  6. SIMVASTATIN. [Concomitant]
     Active Substance: SIMVASTATIN
  7. CITALOPRAM [Suspect]
     Active Substance: CITALOPRAM HYDROBROMIDE
  8. LORAZEPAM. [Concomitant]
     Active Substance: LORAZEPAM
  9. LAMOTRIGINE. [Concomitant]
     Active Substance: LAMOTRIGINE
     Indication: PARTIAL SEIZURES

REACTIONS (2)
  - Drug interaction [Recovered/Resolved]
  - Pleurothotonus [Recovered/Resolved]
